FAERS Safety Report 6770058-3 (Version None)
Quarter: 2010Q2

REPORT INFORMATION
  Report Type: 
  Country: None (occurrence: None)
  Receive Date: 20100615
  Receipt Date: 20100610
  Transmission Date: 20101027
  Serious: Yes (Other)
  Sender: FDA-Public Use
  Company Number: GXKR2010DE05721

PATIENT
  Age: 64 Year
  Sex: Female

DRUGS (2)
  1. VENLAFAXIN 1A PHARMA (NGX) [Suspect]
     Dosage: 37.5 MG, BID
     Route: 048
     Dates: start: 20100521, end: 20100522
  2. AMOXICILLIN W/CLAVULANATE POTASSIUM [Interacting]
     Indication: ACUTE SINUSITIS
     Route: 048

REACTIONS (6)
  - ASTHENIA [None]
  - DEPRESSED LEVEL OF CONSCIOUSNESS [None]
  - DEPRESSION [None]
  - DISEASE RECURRENCE [None]
  - DISORIENTATION [None]
  - DRUG INTERACTION [None]
